FAERS Safety Report 5065781-5 (Version None)
Quarter: 2006Q3

REPORT INFORMATION
  Report Type: 
  Country: None (occurrence: None)
  Receive Date: 20060719
  Receipt Date: 20050921
  Transmission Date: 20061208
  Serious: Yes (Hospitalization)
  Sender: FDA-Public Use
  Company Number: 05P-163-0311949-00

PATIENT
  Sex: 0

DRUGS (4)
  1. NORVIR [Suspect]
     Indication: DRUG USE FOR UNKNOWN INDICATION
     Dosage: 100 MG, 1 IN 1 D, PER ORAL
     Route: 048
  2. TIPRANAVIR [Suspect]
     Indication: HIV INFECTION
     Dosage: 250 MG, 1 IN 1 D, PER ORAL
     Route: 048
  3. FUZEON [Suspect]
     Indication: HIV INFECTION
  4. DELAVIRDINE MESYLATE [Suspect]
     Indication: HIV INFECTION

REACTIONS (1)
  - RENAL FAILURE ACUTE [None]
